FAERS Safety Report 26001239 (Version 2)
Quarter: 2025Q4

REPORT INFORMATION
  Report Type: Spontaneous
  Country: CN (occurrence: CN)
  Receive Date: 20251105
  Receipt Date: 20251113
  Transmission Date: 20260117
  Serious: Yes (Hospitalization)
  Sender: TEVA
  Company Number: CN-TEVA-VS-3388763

PATIENT
  Age: 69 Year
  Sex: Female

DRUGS (6)
  1. DEUTETRABENAZINE [Suspect]
     Active Substance: DEUTETRABENAZINE
     Indication: Respiratory dyskinesia
     Route: 065
  2. DEUTETRABENAZINE [Suspect]
     Active Substance: DEUTETRABENAZINE
     Indication: Respiratory dyskinesia
     Route: 065
  3. DIAZEPAM [Suspect]
     Active Substance: DIAZEPAM
     Indication: Hyperventilation
     Route: 042
  4. LORAZEPAM [Suspect]
     Active Substance: LORAZEPAM
     Indication: Hyperventilation
     Route: 065
  5. RISPERIDONE [Suspect]
     Active Substance: RISPERIDONE
     Indication: Psychotic disorder
     Dosage: 2-4 MG
     Route: 065
  6. OLANZAPINE [Suspect]
     Active Substance: OLANZAPINE
     Indication: Psychotic disorder
     Route: 065

REACTIONS (7)
  - Respiratory dyskinesia [Recovering/Resolving]
  - Sedation complication [Unknown]
  - Tardive dyskinesia [Recovered/Resolved]
  - Treatment noncompliance [Unknown]
  - Respiratory alkalosis [Recovering/Resolving]
  - Hypotension [Unknown]
  - Drug ineffective [Unknown]
